FAERS Safety Report 13846543 (Version 3)
Quarter: 2017Q4

REPORT INFORMATION
  Report Type: Spontaneous
  Country: AU (occurrence: AU)
  Receive Date: 20170808
  Receipt Date: 20171003
  Transmission Date: 20180320
  Serious: Yes (Hospitalization)
  Sender: FDA-Public Use
  Company Number: AU-PFIZER INC-2017338976

PATIENT
  Age: 20 Year
  Sex: Female

DRUGS (4)
  1. CLOPINE [Suspect]
     Active Substance: CLOZAPINE
     Dosage: 2250 MG, UNK
     Dates: start: 20170730, end: 20170731
  2. CLOPINE [Suspect]
     Active Substance: CLOZAPINE
     Dosage: UNK
     Dates: start: 201708, end: 20170804
  3. CLOPINE [Suspect]
     Active Substance: CLOZAPINE
     Dosage: 225 MG, UNK
     Dates: start: 20150527, end: 20170729
  4. DESVENLAFAXINE SUCCINATE MONOHYDRATE [Suspect]
     Active Substance: DESVENLAFAXINE SUCCINATE
     Dosage: 1500 MG, UNK
     Dates: start: 20170730, end: 20170731

REACTIONS (2)
  - Drug level increased [Unknown]
  - Overdose [Unknown]

NARRATIVE: CASE EVENT DATE: 20170730
